FAERS Safety Report 8907369 (Version 1)
Quarter: 2012Q4

REPORT INFORMATION
  Report Type: 
  Country: US (occurrence: US)
  Receive Date: 20121113
  Receipt Date: 20121113
  Transmission Date: 20130627
  Serious: No
  Sender: FDA-Public Use
  Company Number: US-AMGEN-USASP2012010449

PATIENT
  Age: 83 Year
  Sex: Female
  Weight: 80.73 kg

DRUGS (8)
  1. ENBREL [Suspect]
     Indication: PRODUCT USED FOR UNKNOWN INDICATION
     Dosage: 25 mg, 2 times/wk
  2. SINGULAIR [Concomitant]
  3. LASIX                              /00032601/ [Concomitant]
  4. CARDIZEM                           /00489702/ [Concomitant]
  5. OMEPRAZOLE [Concomitant]
  6. ADVAIR [Concomitant]
  7. ALLOPURINOL [Concomitant]
  8. ALTACE [Concomitant]

REACTIONS (2)
  - Rash [Unknown]
  - Rash pruritic [Unknown]
